FAERS Safety Report 15539641 (Version 1)
Quarter: 2018Q4

REPORT INFORMATION
  Report Type: Spontaneous
  Country: US (occurrence: US)
  Receive Date: 20181023
  Receipt Date: 20181023
  Transmission Date: 20190205
  Serious: No
  Sender: FDA-Public Use
  Company Number: US-INSYS THERAPEUTICS, INC-INS201807-000244

PATIENT
  Age: 68 Year
  Sex: Female

DRUGS (2)
  1. SYNDROS [Suspect]
     Active Substance: DRONABINOL
     Indication: VOMITING
  2. SYNDROS [Suspect]
     Active Substance: DRONABINOL
     Indication: NAUSEA

REACTIONS (1)
  - Euphoric mood [Recovered/Resolved]

NARRATIVE: CASE EVENT DATE: 20180724
